FAERS Safety Report 13568655 (Version 1)
Quarter: 2017Q2

REPORT INFORMATION
  Report Type: Spontaneous
  Country: US (occurrence: US)
  Receive Date: 20170522
  Receipt Date: 20170522
  Transmission Date: 20170830
  Serious: Yes (Other)
  Sender: FDA-Public Use
  Company Number: None

PATIENT
  Age: 62 Year
  Sex: Male
  Weight: 99 kg

DRUGS (7)
  1. QUESTRAN [Concomitant]
     Active Substance: CHOLESTYRAMINE
  2. TRESIBA [Suspect]
     Active Substance: INSULIN DEGLUDEC
     Indication: DIABETES MELLITUS
     Dosage: ?          OTHER STRENGTH:UNITS;QUANTITY:1 INJECTION(S);?
     Route: 058
     Dates: start: 20170425
  3. VIIBRYD [Concomitant]
     Active Substance: VILAZODONE HYDROCHLORIDE
  4. ASPIRIN. [Concomitant]
     Active Substance: ASPIRIN
  5. ACTOS [Concomitant]
     Active Substance: PIOGLITAZONE HYDROCHLORIDE
  6. IBUPROFEN. [Concomitant]
     Active Substance: IBUPROFEN
  7. PERCOCET [Concomitant]
     Active Substance: ACETAMINOPHEN\OXYCODONE HYDROCHLORIDE

REACTIONS (5)
  - Pain [None]
  - Muscular weakness [None]
  - Diarrhoea [None]
  - Treatment failure [None]
  - Blood glucose abnormal [None]

NARRATIVE: CASE EVENT DATE: 20170426
